FAERS Safety Report 24817548 (Version 1)
Quarter: 2025Q1

REPORT INFORMATION
  Report Type: Spontaneous
  Country: GB (occurrence: GB)
  Receive Date: 20250108
  Receipt Date: 20250108
  Transmission Date: 20250408
  Serious: Yes (Other)
  Sender: ORGANON
  Company Number: None

PATIENT
  Age: 33 Year
  Sex: Male
  Weight: 75 kg

DRUGS (2)
  1. FINASTERIDE [Suspect]
     Active Substance: FINASTERIDE
     Indication: Alopecia
     Dates: start: 20240601, end: 20240815
  2. MINOXIDIL [Suspect]
     Active Substance: MINOXIDIL
     Dates: start: 20240601, end: 20240815

REACTIONS (2)
  - Hypertrichosis [Not Recovered/Not Resolved]
  - Depression [Recovering/Resolving]
